FAERS Safety Report 17777916 (Version 1)
Quarter: 2020Q2

REPORT INFORMATION
  Report Type: Spontaneous
  Country: US (occurrence: US)
  Receive Date: 20200513
  Receipt Date: 20200513
  Transmission Date: 20200714
  Serious: Yes (Hospitalization)
  Sender: FDA-Public Use
  Company Number: US-009507513-2005USA002928

PATIENT
  Age: 73 Year
  Sex: Female

DRUGS (6)
  1. SIVEXTRO [Suspect]
     Active Substance: TEDIZOLID PHOSPHATE
     Indication: ABSCESS BACTERIAL
     Dosage: 1 PILL, DAILY
     Route: 048
     Dates: start: 20200108
  2. AZITHROMYCIN ANHYDROUS. [Suspect]
     Active Substance: AZITHROMYCIN ANHYDROUS
     Dosage: UNK
     Dates: start: 20200108, end: 202003
  3. SIVEXTRO [Suspect]
     Active Substance: TEDIZOLID PHOSPHATE
     Dosage: 1 PILL, DAILY
     Route: 048
     Dates: start: 202003
  4. TIGECYCLINE. [Suspect]
     Active Substance: TIGECYCLINE
     Dosage: UNK
     Dates: start: 20200108, end: 202003
  5. AMIKACIN. [Suspect]
     Active Substance: AMIKACIN
     Dosage: UNK
     Dates: start: 20200108, end: 202003
  6. LINEZOLID. [Suspect]
     Active Substance: LINEZOLID
     Dosage: UNK
     Dates: start: 20200108, end: 202003

REACTIONS (4)
  - Abscess bacterial [Not Recovered/Not Resolved]
  - Alopecia [Not Recovered/Not Resolved]
  - Haemoglobin increased [Not Recovered/Not Resolved]
  - Adverse event [Unknown]

NARRATIVE: CASE EVENT DATE: 202003
